FAERS Safety Report 14268007 (Version 1)
Quarter: 2017Q4

REPORT INFORMATION
  Report Type: Spontaneous
  Country: US (occurrence: US)
  Receive Date: 20171211
  Receipt Date: 20171211
  Transmission Date: 20180321
  Serious: No
  Sender: FDA-Public Use
  Company Number: US-ROCHE-1863340

PATIENT
  Sex: Female

DRUGS (19)
  1. NEURONTIN [Concomitant]
     Active Substance: GABAPENTIN
     Route: 065
  2. BACTRIM [Suspect]
     Active Substance: SULFAMETHOXAZOLE\TRIMETHOPRIM
     Indication: PRODUCT USED FOR UNKNOWN INDICATION
     Route: 065
  3. COUMADIN [Concomitant]
     Active Substance: WARFARIN SODIUM
  4. COLESTID [Concomitant]
     Active Substance: COLESTIPOL HYDROCHLORIDE
     Route: 065
  5. NITROSTAT [Concomitant]
     Active Substance: NITROGLYCERIN
  6. DARVON [Concomitant]
     Active Substance: PROPOXYPHENE HYDROCHLORIDE
  7. HALCION [Concomitant]
     Active Substance: TRIAZOLAM
     Dosage: 1 HRS AS NEEDED
     Route: 065
  8. ANTIVERT [Concomitant]
     Active Substance: MECLIZINE HYDROCHLORIDE
  9. LEVOTHYROXIN [Concomitant]
     Active Substance: LEVOTHYROXINE
     Route: 065
  10. DEPO-MEDROL [Concomitant]
     Active Substance: METHYLPREDNISOLONE ACETATE
     Route: 065
  11. VALIUM [Suspect]
     Active Substance: DIAZEPAM
     Indication: PRODUCT USED FOR UNKNOWN INDICATION
     Route: 065
  12. TESSALON [Concomitant]
     Active Substance: BENZONATATE
  13. DEPO-MEDROL [Concomitant]
     Active Substance: METHYLPREDNISOLONE ACETATE
     Route: 065
  14. DEMEROL [Concomitant]
     Active Substance: MEPERIDINE HYDROCHLORIDE
  15. VICODIN [Concomitant]
     Active Substance: ACETAMINOPHEN\HYDROCODONE BITARTRATE
  16. XANAX [Concomitant]
     Active Substance: ALPRAZOLAM
  17. NORVASC [Concomitant]
     Active Substance: AMLODIPINE BESYLATE
  18. CODEINE [Concomitant]
     Active Substance: CODEINE
  19. ZOLOFT [Concomitant]
     Active Substance: SERTRALINE HYDROCHLORIDE

REACTIONS (2)
  - Drug hypersensitivity [Unknown]
  - Rash [Unknown]
